FAERS Safety Report 6211244-0 (Version None)
Quarter: 2009Q2

REPORT INFORMATION
  Report Type: 
  Country: None (occurrence: None)
  Receive Date: 20090602
  Receipt Date: 20090522
  Transmission Date: 20091009
  Serious: Yes (Other)
  Sender: FDA-Public Use
  Company Number: PHEH2007US12178

PATIENT
  Sex: Male
  Weight: 78.912 kg

DRUGS (1)
  1. ZOMETA [Suspect]
     Indication: MULTIPLE MYELOMA
     Dosage: UNK, UNK

REACTIONS (19)
  - ANHEDONIA [None]
  - ANXIETY [None]
  - CONSTIPATION [None]
  - DEFORMITY [None]
  - DISCOMFORT [None]
  - EMOTIONAL DISTRESS [None]
  - HYPOPHAGIA [None]
  - INJURY [None]
  - LIFE EXPECTANCY SHORTENED [None]
  - LUMBAR SPINAL STENOSIS [None]
  - MULTIPLE MYELOMA [None]
  - OSTEONECROSIS [None]
  - PAIN [None]
  - PARAPLEGIA [None]
  - PLEURAL EFFUSION [None]
  - RADIOTHERAPY [None]
  - SPINAL COMPRESSION FRACTURE [None]
  - SPINAL FUSION SURGERY [None]
  - THORACIC OPERATION [None]
